FAERS Safety Report 8905983 (Version 6)
Quarter: 2013Q1

REPORT INFORMATION
  Report Type: Spontaneous
  Country: US (occurrence: US)
  Receive Date: 20121112
  Receipt Date: 20130212
  Transmission Date: 20140127
  Serious: Yes (Hospitalization, Other)
  Sender: FDA-Public Use
  Company Number: US-PFIZER INC-2012279601

PATIENT
  Age: 76 Year
  Sex: Male
  Weight: 90.7 kg

DRUGS (17)
  1. SUTENT [Suspect]
     Indication: METASTATIC RENAL CELL CARCINOMA
     Dosage: 37.5 MG, 1X/DAY, 4 WKS ON/2 WKS OFF
     Route: 048
     Dates: start: 20121008, end: 20121229
  2. SENOKOT [Concomitant]
     Dosage: UNK
  3. STOOL SOFTENER [Concomitant]
     Dosage: UNK
  4. OXYCODONE [Concomitant]
     Indication: PAIN
     Dosage: 15 MG, ONE TO TWO TABS Q 4 HOURS AS NEEDED
  5. OXYCODONE [Concomitant]
     Indication: PAIN
  6. FENTANYL [Concomitant]
     Dosage: 25 UG, UNK
  7. PROCRIT [Concomitant]
     Dosage: UNK, WEEKLY IF NEEDED/AS NEEDED
  8. LORAZEPAM [Concomitant]
     Dosage: UNK
  9. BYSTOLIC [Concomitant]
     Dosage: UNK
  10. NOVOLOG [Concomitant]
     Dosage: UNK
  11. LANTUS [Concomitant]
     Dosage: UNK
  12. HYDROCHLOROTHIAZIDE [Concomitant]
     Dosage: UNK
  13. FLOMAX [Concomitant]
     Dosage: UNK
  14. HYDRALAZINE [Concomitant]
     Dosage: UNK
  15. AMLODIPINE [Concomitant]
     Dosage: UNK
  16. CARDIZEM [Concomitant]
     Dosage: UNK
  17. MAGIC MOUTHWASH [Concomitant]
     Dosage: UNK, AS NEEDED

REACTIONS (17)
  - Loss of consciousness [Unknown]
  - Rib fracture [Unknown]
  - Gait disturbance [Unknown]
  - Hypoaesthesia [Unknown]
  - Nail bed tenderness [Unknown]
  - Nail bed disorder [Unknown]
  - Dysgeusia [Unknown]
  - Fatigue [Recovering/Resolving]
  - Palmar-plantar erythrodysaesthesia syndrome [Unknown]
  - Emotional disorder [Unknown]
  - Neuropathy peripheral [Not Recovered/Not Resolved]
  - Musculoskeletal chest pain [Unknown]
  - Dizziness [Unknown]
  - Blood phosphorus decreased [Unknown]
  - Concussion [Unknown]
  - Pain in extremity [Unknown]
  - Nausea [Unknown]
